FAERS Safety Report 19794935 (Version 1)
Quarter: 2021Q3

REPORT INFORMATION
  Report Type: Spontaneous
  Country: US (occurrence: US)
  Receive Date: 20210907
  Receipt Date: 20210907
  Transmission Date: 20211014
  Serious: No
  Sender: FDA-Public Use
  Company Number: NVSC2021US200295

PATIENT
  Sex: Male

DRUGS (1)
  1. COSENTYX [Suspect]
     Active Substance: SECUKINUMAB
     Indication: PRODUCT USED FOR UNKNOWN INDICATION
     Dosage: 150 MG, QMO(EVERY 4 WEEKS)
     Route: 065

REACTIONS (6)
  - Product administration error [Unknown]
  - Accidental exposure to product [Unknown]
  - Product dispensing error [Unknown]
  - Incorrect dose administered [Unknown]
  - Device issue [Unknown]
  - Injection site pain [Unknown]
